FAERS Safety Report 8454692-0 (Version None)
Quarter: 2012Q2

REPORT INFORMATION
  Report Type: 
  Country: None (occurrence: None)
  Receive Date: 20120615
  Receipt Date: 20120615
  Transmission Date: 20120825
  Serious: Yes (Life-Threatening)
  Sender: FDA-Public Use
  Company Number: None

PATIENT
  Sex: Female
  Weight: 68.0396 kg

DRUGS (1)
  1. CLOPIDOGREL [Suspect]
     Indication: INTRACRANIAL ANEURYSM
     Dosage: CLOPIDOGREL 75MG 1 QD PO
     Route: 048
     Dates: start: 20120528

REACTIONS (6)
  - MYALGIA [None]
  - HAEMORRHAGE [None]
  - ABDOMINAL PAIN UPPER [None]
  - FATIGUE [None]
  - INFLUENZA LIKE ILLNESS [None]
  - CONTUSION [None]
